FAERS Safety Report 8950559 (Version 1)
Quarter: 2012Q4

REPORT INFORMATION
  Report Type: Spontaneous
  Country: US (occurrence: None)
  Receive Date: 20121204
  Receipt Date: 20121204
  Transmission Date: 20130627
  Serious: Yes (Life-Threatening)
  Sender: FDA-Public Use
  Company Number: None

PATIENT
  Age: 72 Year
  Sex: Male
  Weight: 56.3 kg

DRUGS (1)
  1. PROTAMINE SULFATE [Suspect]
     Indication: SURGERY
     Dosage: 30 MG  ONCE  IV
     Route: 042
     Dates: start: 20121108, end: 20121108

REACTIONS (3)
  - Bronchospasm [None]
  - Dyspnoea [None]
  - Hypotension [None]
